FAERS Safety Report 6706873-1 (Version None)
Quarter: 2010Q2

REPORT INFORMATION
  Report Type: 
  Country: None (occurrence: None)
  Receive Date: 20100503
  Receipt Date: 20100421
  Transmission Date: 20101027
  Serious: Yes (Hospitalization)
  Sender: FDA-Public Use
  Company Number: CA-JNJFOC-20100406855

PATIENT
  Sex: Female
  Weight: 72 kg

DRUGS (24)
  1. REMICADE [Suspect]
     Indication: COLITIS ULCERATIVE
     Route: 042
  2. REMICADE [Suspect]
     Route: 042
  3. PREMARIN [Suspect]
     Indication: DRUG USE FOR UNKNOWN INDICATION
  4. DIMENHYDRINATE [Concomitant]
  5. SOLU-CORTEF [Concomitant]
  6. APO-PROPRANOLOL [Concomitant]
  7. RIVA-D [Concomitant]
  8. CALCIUM [Concomitant]
  9. PURINETHOL [Concomitant]
  10. NITRAZEPAM [Concomitant]
  11. NOVO ALPRAZOL [Concomitant]
  12. NOVOQUININE [Concomitant]
  13. COZAAR [Concomitant]
  14. PLENDIL [Concomitant]
  15. APO FUROSEMIDE [Concomitant]
  16. LYRICA [Concomitant]
  17. RAN-PANTOPRAZOLE [Concomitant]
  18. RELPAX [Concomitant]
  19. GRAVOL TAB [Concomitant]
  20. VITAMIN B-12 [Concomitant]
  21. RATIO EMTEC [Concomitant]
  22. ACETAMINOPHEN [Concomitant]
  23. DICLOFENAC [Concomitant]
  24. FLUCONAZOLE [Concomitant]

REACTIONS (1)
  - MIGRAINE [None]
